FAERS Safety Report 9233406 (Version 1)
Quarter: 2013Q2

REPORT INFORMATION
  Report Type: Spontaneous
  Country: MX (occurrence: None)
  Receive Date: 20130412
  Receipt Date: 20130412
  Transmission Date: 20140414
  Serious: Yes (Other)
  Sender: FDA-Public Use
  Company Number: ENTC2013-0133

PATIENT
  Age: 73 Year
  Sex: Male

DRUGS (3)
  1. STALEVO (LEVODOPA, CARBIDOPA, ENTACAPONE) [Suspect]
     Indication: PARKINSON^S DISEASE
     Route: 048
     Dates: start: 20080805
  2. DIAMIN [Concomitant]
  3. CAPTOPRIL [Concomitant]

REACTIONS (1)
  - Dysstasia [None]
